FAERS Safety Report 12743428 (Version 7)
Quarter: 2018Q2

REPORT INFORMATION
  Report Type: Report from Study
  Country: None (occurrence: NL)
  Receive Date: 20160914
  Receipt Date: 20180612
  Transmission Date: 20180711
  Serious: Yes (Other)
  Sender: FDA-Public Use
  Company Number: NL-ABBVIE-16K-114-1722595-00

PATIENT
  Age: 85 Year
  Sex: Female
  Weight: 60 kg

DRUGS (2)
  1. DUODOPA [Suspect]
     Active Substance: CARBIDOPA\LEVODOPA
     Indication: PARKINSON^S DISEASE
     Dosage: MD: 5.0, CD: 2.7, ED: 0.8
     Route: 050
     Dates: start: 20150424
  2. DUODOPA [Suspect]
     Active Substance: CARBIDOPA\LEVODOPA
     Dosage: MD: 5.0, CD: 3.2, ED: 0.8
     Route: 050

REACTIONS (26)
  - Asthenia [Not Recovered/Not Resolved]
  - Oromandibular dystonia [Not Recovered/Not Resolved]
  - Dyskinesia [Not Recovered/Not Resolved]
  - Joint stiffness [Not Recovered/Not Resolved]
  - Gait disturbance [Unknown]
  - Atrial fibrillation [Not Recovered/Not Resolved]
  - Ageusia [Not Recovered/Not Resolved]
  - Malnutrition [Unknown]
  - Hypophagia [Not Recovered/Not Resolved]
  - General physical health deterioration [Not Recovered/Not Resolved]
  - Mastication disorder [Not Recovered/Not Resolved]
  - Muscle rigidity [Not Recovered/Not Resolved]
  - Feeling hot [Unknown]
  - Dysphagia [Not Recovered/Not Resolved]
  - Cognitive disorder [Not Recovered/Not Resolved]
  - Weight decreased [Recovered/Resolved]
  - Orthostatic hypotension [Unknown]
  - Mental impairment [Not Recovered/Not Resolved]
  - Decreased appetite [Not Recovered/Not Resolved]
  - Dizziness [Recovering/Resolving]
  - Fluid intake reduced [Recovered/Resolved]
  - Memory impairment [Not Recovered/Not Resolved]
  - Abnormal dreams [Not Recovered/Not Resolved]
  - Fatigue [Not Recovered/Not Resolved]
  - Bradykinesia [Not Recovered/Not Resolved]
  - Stoma site discharge [Not Recovered/Not Resolved]

NARRATIVE: CASE EVENT DATE: 201608
